FAERS Safety Report 6429234-1 (Version None)
Quarter: 2009Q4

REPORT INFORMATION
  Report Type: 
  Country: None (occurrence: None)
  Receive Date: 20091105
  Receipt Date: 20091026
  Transmission Date: 20100525
  Serious: Yes (Other)
  Sender: FDA-Public Use
  Company Number: PHEH2009US13039

PATIENT
  Sex: Female

DRUGS (6)
  1. EXFORGE [Suspect]
     Indication: HYPERTENSION
     Dosage: 5/320 MG, QD
     Route: 048
     Dates: start: 20081021, end: 20090801
  2. EXFORGE [Suspect]
     Dosage: 10/320 MG, QD
     Route: 048
  3. TRAMADOL HCL [Concomitant]
     Indication: PAIN
     Dosage: 50 MG, UNK
  4. MOBIC [Concomitant]
     Indication: PAIN
     Dosage: 15 MG, UNK
  5. GABAPENTIN [Concomitant]
     Indication: PAIN
  6. FLEXERIL [Concomitant]
     Dosage: UNK, TID

REACTIONS (5)
  - BLOOD CREATININE INCREASED [None]
  - BLOOD PRESSURE INADEQUATELY CONTROLLED [None]
  - BURNING SENSATION [None]
  - HYPERKALAEMIA [None]
  - RENAL FAILURE [None]
